FAERS Safety Report 21800956 (Version 1)
Quarter: 2022Q4

REPORT INFORMATION
  Report Type: Report from Study
  Country: CO (occurrence: CO)
  Receive Date: 20221230
  Receipt Date: 20221230
  Transmission Date: 20230113
  Serious: Yes (Death, Hospitalization)
  Sender: FDA-Public Use
  Company Number: CO-002147023-NVSC2022CO055924

PATIENT
  Age: 68 Year
  Sex: Female

DRUGS (3)
  1. KISQALI [Suspect]
     Active Substance: RIBOCICLIB
     Indication: Breast cancer
     Dosage: 600 MG, QD
     Route: 048
     Dates: start: 20220304
  2. KISQALI [Suspect]
     Active Substance: RIBOCICLIB
     Indication: Breast cancer metastatic
     Dosage: UNK UNK, QD
     Route: 048
  3. ANASTROZOLE [Suspect]
     Active Substance: ANASTROZOLE
     Indication: Product used for unknown indication
     Dosage: UNK
     Route: 065

REACTIONS (14)
  - Death [Fatal]
  - Peripheral swelling [Unknown]
  - Gastritis [Unknown]
  - Metastatic neoplasm [Unknown]
  - Osteoporosis [Unknown]
  - Gait disturbance [Unknown]
  - Aphasia [Unknown]
  - Limb discomfort [Unknown]
  - Insomnia [Unknown]
  - Tremor [Unknown]
  - Arthralgia [Unknown]
  - Pain in extremity [Unknown]
  - Mood altered [Unknown]
  - Feeling abnormal [Unknown]

NARRATIVE: CASE EVENT DATE: 20221221
